FAERS Safety Report 7592917-4 (Version None)
Quarter: 2011Q2

REPORT INFORMATION
  Report Type: 
  Country: None (occurrence: None)
  Receive Date: 20110628
  Receipt Date: 20110620
  Transmission Date: 20111010
  Serious: Yes (Hospitalization)
  Sender: FDA-Public Use
  Company Number: AXC-2011-000272

PATIENT
  Age: 47 Year
  Sex: Male

DRUGS (6)
  1. SPIRONOLACTONE [Suspect]
     Indication: PRODUCT USED FOR UNKNOWN INDICATION
     Dosage: 3 DF, QD, ORAL
     Route: 048
     Dates: start: 20110331
  2. LIVACT	/00847901/(ISOLEUCINE, LEUCINE, VALINE) UNKNOWN [Suspect]
     Indication: PRODUCT USED FOR UNKNOWN INDICATION
     Dosage: 3 DF, QD, ORAL
     Route: 048
     Dates: start: 20110331
  3. AMINOLEBAN EN(ALANINE, AMINOACETIC ACID, ARGININE HYDROCHLORIDE, ISOLE [Suspect]
     Indication: PRODUCT USED FOR UNKNOWN INDICATION
     Dosage: 2 PACKS,QD, ORAL
     Route: 048
     Dates: start: 20110331
  4. URSODIOL [Suspect]
     Indication: HEPATIC CIRRHOSIS
     Dosage: 600 MG, QD, ORAL
     Route: 048
     Dates: start: 20110331, end: 20110101
  5. PARIET (RABEPRAZOLE SODIUM) TABLET [Suspect]
     Indication: PRODUCT USED FOR UNKNOWN INDICATION
     Dosage: 1 DF, QD,
     Dates: start: 20110331
  6. LEBENIN(LACTOBACILLUS ACIDOPHILUS, LACTOBACILLUS BIFIDUS, LYOPHILIZED, [Suspect]
     Indication: PRODUCT USED FOR UNKNOWN INDICATION
     Dosage: 3 DF, QD, ORAL
     Route: 048
     Dates: start: 20110331

REACTIONS (3)
  - ALANINE AMINOTRANSFERASE INCREASED [None]
  - HEPATIC FUNCTION ABNORMAL [None]
  - ASPARTATE AMINOTRANSFERASE INCREASED [None]
